FAERS Safety Report 4828112-9 (Version None)
Quarter: 2005Q4

REPORT INFORMATION
  Report Type: 
  Country: None (occurrence: None)
  Receive Date: 20051110
  Receipt Date: 20051027
  Transmission Date: 20060501
  Serious: Yes (Disabling)
  Sender: FDA-Public Use
  Company Number: 2005S1010703

PATIENT
  Age: 46 Year
  Sex: Female

DRUGS (2)
  1. TETRACYCLINE HYDROCHLORIDE [Suspect]
     Indication: ROSACEA
     Dosage: SEE IMAGE
     Route: 048
     Dates: start: 20010101
  2. VITAMINS [Concomitant]

REACTIONS (7)
  - BLOOD AMYLASE INCREASED [None]
  - DIARRHOEA [None]
  - FLATULENCE [None]
  - FOOD INTOLERANCE [None]
  - FREQUENT BOWEL MOVEMENTS [None]
  - THERAPY NON-RESPONDER [None]
  - WEIGHT DECREASED [None]
